FAERS Safety Report 8625505-9 (Version None)
Quarter: 2012Q3

REPORT INFORMATION
  Report Type: 
  Country: None (occurrence: None)
  Receive Date: 20120827
  Receipt Date: 20120823
  Transmission Date: 20120928
  Serious: Yes (Other)
  Sender: FDA-Public Use
  Company Number: FR-ROCHE-1082586

PATIENT
  Age: 73 Year
  Sex: Male
  Weight: 71 kg

DRUGS (3)
  1. FLUOROURACIL [Suspect]
     Indication: COLORECTAL CANCER
     Route: 042
     Dates: start: 20120522, end: 20120627
  2. AVASTIN [Suspect]
     Indication: COLORECTAL CANCER
     Route: 042
     Dates: start: 20120522, end: 20120606
  3. LEUCOVORIN CALCIUM [Concomitant]
     Route: 042
     Dates: start: 20120522, end: 20120627

REACTIONS (2)
  - FOLLICULITIS [None]
  - RASH [None]
